FAERS Safety Report 10354750 (Version 8)
Quarter: 2015Q2

REPORT INFORMATION
  Report Type: Spontaneous
  Country: GB (occurrence: GB)
  Receive Date: 20140731
  Receipt Date: 20150429
  Transmission Date: 20150821
  Serious: Yes (Other)
  Sender: FDA-Public Use
  Company Number: GB-WATSON-2014-16295

PATIENT
  Age: 59 Year
  Sex: Female
  Weight: 80 kg

DRUGS (10)
  1. DILTIAZEM [Concomitant]
     Active Substance: DILTIAZEM
     Indication: PRODUCT USED FOR UNKNOWN INDICATION
     Dosage: UNK
     Route: 065
  2. OMEPRAZOLE. [Concomitant]
     Active Substance: OMEPRAZOLE
     Indication: PRODUCT USED FOR UNKNOWN INDICATION
     Dosage: UNK
     Route: 065
  3. RAMIPRIL. [Concomitant]
     Active Substance: RAMIPRIL
     Indication: HYPERTENSION
     Dosage: UNK
     Route: 065
  4. TRAMADOL (UNKNOWN) [Interacting]
     Active Substance: TRAMADOL
     Indication: ANALGESIC THERAPY
     Dosage: 100 MG, UNKNOWN
     Route: 048
     Dates: start: 2013, end: 20140309
  5. CODEINE PHOSPHATE [Concomitant]
     Active Substance: CODEINE PHOSPHATE
     Indication: PRODUCT USED FOR UNKNOWN INDICATION
     Dosage: UNK
     Route: 065
  6. TRAMADOL (UNKNOWN) [Interacting]
     Active Substance: TRAMADOL
     Indication: ANXIETY
  7. ASPIRIN. [Concomitant]
     Active Substance: ASPIRIN
     Indication: PRODUCT USED FOR UNKNOWN INDICATION
     Dosage: 75 MG, UNKNOWN
     Route: 065
  8. CITALOPRAM [Suspect]
     Active Substance: CITALOPRAM HYDROBROMIDE
     Indication: ANXIETY
     Dosage: 90 MG, IN SEPARATE DOSES OVER 12 HOURS
     Route: 048
     Dates: start: 2012, end: 20140309
  9. CITALOPRAM [Interacting]
     Active Substance: CITALOPRAM HYDROBROMIDE
     Indication: OSTEOARTHRITIS
     Dosage: 40 MG, UNKNOWN
     Route: 048
  10. TRAMADOL (UNKNOWN) [Interacting]
     Active Substance: TRAMADOL
     Indication: OSTEOARTHRITIS

REACTIONS (19)
  - Muscle rigidity [Recovered/Resolved]
  - Confusional state [Unknown]
  - Feeling hot [Recovered/Resolved]
  - Drug interaction [Unknown]
  - Accidental overdose [Unknown]
  - Dizziness [Recovered/Resolved]
  - Hyperhidrosis [Recovered/Resolved]
  - Tongue biting [Unknown]
  - Disorientation [Recovered/Resolved]
  - Speech disorder [Recovered/Resolved]
  - Unresponsive to stimuli [Recovered/Resolved]
  - Bruxism [Recovered/Resolved]
  - Pallor [Recovered/Resolved]
  - Tachycardia [Recovered/Resolved]
  - Product packaging confusion [Unknown]
  - Skin discolouration [Recovered/Resolved]
  - Malaise [Recovered/Resolved]
  - Palpitations [Recovered/Resolved]
  - Loss of consciousness [Recovered/Resolved]

NARRATIVE: CASE EVENT DATE: 20140308
